FAERS Safety Report 8505085-9 (Version None)
Quarter: 2012Q3

REPORT INFORMATION
  Report Type: 
  Country: None (occurrence: None)
  Receive Date: 20120712
  Receipt Date: 20120629
  Transmission Date: 20120928
  Serious: Yes (Other)
  Sender: FDA-Public Use
  Company Number: NO-FRI-1000031157

PATIENT
  Age: 19 Year
  Sex: Female

DRUGS (2)
  1. ESCITALOPRAM [Suspect]
     Dosage: 10 MG
     Route: 048
  2. ESCITALOPRAM [Suspect]
     Dosage: 20
     Route: 048

REACTIONS (2)
  - BINGE EATING [None]
  - INTENTIONAL SELF-INJURY [None]
